FAERS Safety Report 8301116-X (Version None)
Quarter: 2012Q2

REPORT INFORMATION
  Report Type: 
  Country: None (occurrence: None)
  Receive Date: 20120420
  Receipt Date: 20120413
  Transmission Date: 20120825
  Serious: Yes (Death, Hospitalization, Other)
  Sender: FDA-Public Use
  Company Number: MX-SANOFI-AVENTIS-2012SA016847

PATIENT
  Age: 49 Year
  Sex: Female

DRUGS (20)
  1. TAXOTERE [Suspect]
     Route: 042
     Dates: start: 20111017, end: 20111017
  2. TAXOTERE [Suspect]
     Route: 042
     Dates: start: 20111017, end: 20111017
  3. TAXOTERE [Suspect]
     Route: 042
     Dates: start: 20111118, end: 20111118
  4. TAXOTERE [Suspect]
     Route: 042
     Dates: start: 20111118, end: 20111118
  5. TAXOTERE [Suspect]
     Route: 042
     Dates: start: 20111118, end: 20111118
  6. TAXOTERE [Suspect]
     Route: 042
     Dates: start: 20111209, end: 20111209
  7. TAXOTERE [Suspect]
     Route: 042
     Dates: start: 20111017, end: 20111017
  8. TAXOTERE [Suspect]
     Route: 042
     Dates: start: 20111209, end: 20111209
  9. TAXOTERE [Suspect]
     Route: 042
     Dates: start: 20111209, end: 20111209
  10. TAXOTERE [Suspect]
     Route: 042
     Dates: start: 20111230, end: 20111230
  11. TAXOTERE [Suspect]
     Route: 042
     Dates: start: 20111230, end: 20111230
  12. TAXOTERE [Suspect]
     Route: 042
     Dates: start: 20111230, end: 20111230
  13. TAXOTERE [Suspect]
     Route: 042
     Dates: start: 20111017, end: 20111017
  14. TAXOTERE [Suspect]
     Route: 042
     Dates: start: 20111209, end: 20111209
  15. TAXOTERE [Suspect]
     Route: 042
     Dates: start: 20111230, end: 20111230
  16. TAXOTERE [Suspect]
     Indication: BREAST CANCER STAGE II
     Route: 042
     Dates: start: 20111017, end: 20111017
  17. TAXOTERE [Suspect]
     Route: 042
     Dates: start: 20111118, end: 20111118
  18. TAXOTERE [Suspect]
     Route: 042
     Dates: start: 20111118, end: 20111118
  19. TAXOTERE [Suspect]
     Route: 042
     Dates: start: 20111209, end: 20111209
  20. TAXOTERE [Suspect]
     Route: 042
     Dates: start: 20111230, end: 20111230

REACTIONS (21)
  - PNEUMONIA [None]
  - DYSPNOEA [None]
  - PLEURAL EFFUSION [None]
  - RESPIRATORY DISTRESS [None]
  - COUGH [None]
  - PERICARDIAL EFFUSION [None]
  - ACID BASE BALANCE ABNORMAL [None]
  - VENTRICULAR FIBRILLATION [None]
  - HYPOXIA [None]
  - FATIGUE [None]
  - LYMPHADENOPATHY MEDIASTINAL [None]
  - THROMBOCYTOPENIA [None]
  - SEPTIC SHOCK [None]
  - HYPERTHERMIA [None]
  - ACUTE RESPIRATORY DISTRESS SYNDROME [None]
  - ATELECTASIS [None]
  - HYPERCAPNIA [None]
  - ASTHENIA [None]
  - PNEUMONIA RESPIRATORY SYNCYTIAL VIRAL [None]
  - CARDIOMEGALY [None]
  - ARRHYTHMIA [None]
